FAERS Safety Report 7347375-1 (Version None)
Quarter: 2011Q1

REPORT INFORMATION
  Report Type: 
  Country: None (occurrence: None)
  Receive Date: 20110311
  Receipt Date: 20110228
  Transmission Date: 20110831
  Serious: Yes (Hospitalization)
  Sender: FDA-Public Use
  Company Number: GXKR2008DK05802

PATIENT

DRUGS (18)
  1. LANSOPRAZOLE [Suspect]
     Indication: GASTRIC ULCER
     Dosage: 60 MG/DAY
     Route: 048
     Dates: start: 20080507, end: 20080523
  2. VITAMIN B SUBSTANCES [Concomitant]
     Indication: HYPOVITAMINOSIS
     Dosage: UNK
  3. LANSOPRAZOLE [Suspect]
     Dosage: 30 MG, 2X/DAY
     Route: 048
     Dates: start: 20080507, end: 20080523
  4. MERONEM [Suspect]
     Indication: PYREXIA
     Dosage: 1000 MG/DAY
     Route: 042
     Dates: start: 20080511, end: 20080516
  5. ZINACEF [Concomitant]
     Indication: PYREXIA
     Route: 065
  6. CIPROFLOXACIN [Suspect]
     Indication: PYREXIA
     Dosage: UNK
     Route: 065
     Dates: start: 20080430, end: 20080503
  7. FLUCONAZOLE [Suspect]
     Dosage: UNK
     Route: 065
     Dates: start: 20080429, end: 20080519
  8. PANTOLOC [Suspect]
     Indication: ABDOMINAL PAIN
     Dosage: 40 MG, QD
     Route: 048
     Dates: start: 20080428, end: 20080530
  9. B-COMBIN [Concomitant]
     Indication: HYPOVITAMINOSIS
     Dosage: 3 DF
     Route: 065
     Dates: start: 20080508
  10. FLUCONAZOLE [Suspect]
     Indication: PYREXIA
     Dosage: 200 MG, 1X/DAY
     Dates: start: 20080429, end: 20080519
  11. ZINACEF [Concomitant]
     Dosage: 750 MG, 3X/DAY
     Route: 030
     Dates: start: 20080430, end: 20080510
  12. PANTOLOC [Suspect]
     Dosage: 40 MG, 1X/DAY
     Route: 048
     Dates: start: 20080527, end: 20080530
  13. MERONEM [Suspect]
     Dosage: 1000 MG, UNK
     Route: 042
     Dates: start: 20080511, end: 20080516
  14. THIAMINE HCL [Concomitant]
     Dosage: 300 MG, 1X/DAY
     Dates: start: 20080428
  15. CIPROFLOXACIN [Suspect]
     Dosage: 800 MG, 1X/DAY
     Dates: start: 20080430, end: 20080503
  16. PANTOLOC [Suspect]
     Dosage: 40 MG, 1X/DAY
     Route: 048
     Dates: start: 20080428, end: 20080507
  17. ZINACEF [Concomitant]
     Dosage: 1500 MG, 3X/DAY
     Route: 030
     Dates: start: 20080428, end: 20080430
  18. THIAMINE HCL [Concomitant]
     Indication: HYPOVITAMINOSIS
     Dosage: 300 MG
     Route: 048
     Dates: start: 20080428

REACTIONS (8)
  - ASTHENIA [None]
  - RASH MACULO-PAPULAR [None]
  - TREMOR [None]
  - TOXIC EPIDERMAL NECROLYSIS [None]
  - PARAESTHESIA [None]
  - OEDEMA PERIPHERAL [None]
  - RASH [None]
  - PAIN IN EXTREMITY [None]
